FAERS Safety Report 8460468-0 (Version None)
Quarter: 2012Q2

REPORT INFORMATION
  Report Type: 
  Country: None (occurrence: None)
  Receive Date: 20120622
  Receipt Date: 20120618
  Transmission Date: 20120825
  Serious: Yes (Other)
  Sender: FDA-Public Use
  Company Number: US-PFIZER INC-2012118377

PATIENT
  Sex: Female
  Weight: 72.562 kg

DRUGS (3)
  1. LIPITOR [Suspect]
     Indication: BLOOD CHOLESTEROL INCREASED
     Dosage: 20 MG, 1X/DAY
     Route: 048
  2. LYRICA [Suspect]
     Indication: NEUROPATHY PERIPHERAL
     Dosage: 75 MG, 2X/DAY
     Route: 048
     Dates: start: 20060101
  3. TOVIAZ [Suspect]
     Indication: EOSINOPHILIC CYSTITIS
     Dosage: 8 MG, 1X/DAY
     Route: 048

REACTIONS (3)
  - ACCIDENT AT WORK [None]
  - ANXIETY [None]
  - DEPRESSION [None]
